FAERS Safety Report 5125115-4 (Version None)
Quarter: 2006Q4

REPORT INFORMATION
  Report Type: 
  Country: None (occurrence: None)
  Receive Date: 20061006
  Receipt Date: 20060927
  Transmission Date: 20070319
  Serious: Yes (Life-Threatening, Hospitalization, Disabling)
  Sender: FDA-Public Use
  Company Number: 2005083109

PATIENT
  Age: 52 Year
  Sex: Female

DRUGS (11)
  1. FRAGMIN [Suspect]
     Indication: THROMBOSIS PROPHYLAXIS
     Dosage: 5000 I.U. (5000 I.U.,1 IN 1 D), SUBCUTANEOUS
     Route: 058
     Dates: start: 20050228, end: 20050315
  2. OLFEN (DICLOFENAC SODIUM) [Suspect]
     Dosage: ORAL
     Route: 048
     Dates: start: 20050228, end: 20050303
  3. ZOLPIDEM TARTRATE [Suspect]
     Indication: SLEEP DISORDER
     Dosage: 10 MG (10 MG, 1 IN 1 D), ORAL
     Route: 048
     Dates: start: 20050228, end: 20050303
  4. ACETAMINOPHEN [Suspect]
     Dosage: ORAL
     Route: 048
     Dates: start: 20050228, end: 20050303
  5. NAROPIN [Suspect]
     Dates: start: 20050228, end: 20050303
  6. MEPIVACAINE ^BRAUN^ (MEPIVACAINE HYDROCHLORIDE) [Concomitant]
  7. CARBOSTESIN ^ASTRA^ (BUPIVACAINE HYDROCHLORIDE) [Concomitant]
  8. ULTIVA [Concomitant]
  9. DICLOFENAC SODIUM [Concomitant]
  10. LEVOTHYROXINE SODIUM [Concomitant]
  11. DISOPRIVAN ^ASTRA ZENECA^ (PROPOFOL) [Concomitant]

REACTIONS (1)
  - JAUNDICE CHOLESTATIC [None]
